FAERS Safety Report 8129541-0 (Version None)
Quarter: 2012Q1

REPORT INFORMATION
  Report Type: 
  Country: None (occurrence: None)
  Receive Date: 20120210
  Receipt Date: 20120209
  Transmission Date: 20120608
  Serious: Yes (Other)
  Sender: FDA-Public Use
  Company Number: CA-BAYER-2012-013572

PATIENT
  Age: 48 Year
  Sex: Female

DRUGS (1)
  1. INTERFERON BETA-1B [Suspect]
     Dosage: 0.25 MG, UNK
     Route: 058
     Dates: start: 20090201, end: 20120101

REACTIONS (1)
  - CELLULITIS [None]
